FAERS Safety Report 11911155 (Version 1)
Quarter: 2016Q1

REPORT INFORMATION
  Report Type: Spontaneous
  Country: US (occurrence: US)
  Receive Date: 20160112
  Receipt Date: 20160112
  Transmission Date: 20160526
  Serious: No
  Sender: FDA-Public Use
  Company Number: US-TARO-2015TAR00724

PATIENT
  Age: 71 Year
  Sex: Male
  Weight: 80.27 kg

DRUGS (4)
  1. KETOCONAZOLE CREAM 2% [Suspect]
     Active Substance: KETOCONAZOLE
     Indication: SKIN DISORDER
     Dosage: UNK
     Dates: start: 2012
  2. KETOCONAZOLE CREAM 2% [Suspect]
     Active Substance: KETOCONAZOLE
     Dosage: UNK UNK, ONCE
     Route: 048
     Dates: start: 20150801, end: 20150801
  3. CARVEDILOL. [Concomitant]
     Active Substance: CARVEDILOL
     Dosage: 3.125 MG, UNK
  4. LIPITOR [Concomitant]
     Active Substance: ATORVASTATIN CALCIUM
     Dosage: 20 MG, UNK

REACTIONS (3)
  - Accidental exposure to product [Recovered/Resolved]
  - Paraesthesia oral [Not Recovered/Not Resolved]
  - Incorrect route of drug administration [Recovered/Resolved]

NARRATIVE: CASE EVENT DATE: 20150801
